FAERS Safety Report 9894449 (Version 3)
Quarter: 2014Q2

REPORT INFORMATION
  Report Type: Spontaneous
  Country: FR (occurrence: FR)
  Receive Date: 20140213
  Receipt Date: 20140402
  Transmission Date: 20141212
  Serious: Yes (Hospitalization)
  Sender: FDA-Public Use
  Company Number: PHHY2014FR015737

PATIENT
  Age: 22 Year
  Sex: Female
  Weight: 68 kg

DRUGS (2)
  1. RIAMET [Suspect]
     Indication: PLASMODIUM FALCIPARUM INFECTION
     Dosage: UNK
     Route: 048
  2. ARTESUNATE [Suspect]
     Indication: PLASMODIUM FALCIPARUM INFECTION
     Dosage: 3 DF, UNK
     Route: 042
     Dates: start: 20140112

REACTIONS (1)
  - Haemolytic anaemia [Recovered/Resolved]
